FAERS Safety Report 18029956 (Version 1)
Quarter: 2020Q3

REPORT INFORMATION
  Report Type: Other
  Country: HR (occurrence: HR)
  Receive Date: 20200715
  Receipt Date: 20200715
  Transmission Date: 20201103
  Serious: Yes (Life-Threatening, Hospitalization)
  Sender: FDA-Public Use
  Company Number: HR-GE HEALTHCARE LIFE SCIENCES-2020CSU003020

PATIENT

DRUGS (3)
  1. VISIPAQUE [Suspect]
     Active Substance: IODIXANOL
     Indication: COMPUTERISED TOMOGRAM
     Dosage: 100 ML, SINGLE
     Route: 042
     Dates: start: 20200604, end: 20200604
  2. VISIPAQUE [Suspect]
     Active Substance: IODIXANOL
     Indication: PRODUCT USED FOR UNKNOWN INDICATION
  3. SALINE [SODIUM CHLORIDE] [Concomitant]
     Active Substance: SODIUM CHLORIDE
     Indication: COMPUTERISED TOMOGRAM
     Dosage: 50 ML
     Route: 042
     Dates: start: 20200604, end: 20200604

REACTIONS (11)
  - Anaphylactoid reaction [Recovered/Resolved]
  - Paraesthesia [Recovered/Resolved]
  - Face oedema [Recovered/Resolved]
  - Circulatory collapse [Recovered/Resolved]
  - Somnolence [Recovered/Resolved]
  - Vomiting [Recovered/Resolved]
  - Nausea [Recovered/Resolved]
  - Urinary incontinence [Recovered/Resolved]
  - Asthenia [Recovered/Resolved]
  - Dizziness [Recovered/Resolved]
  - Blood pressure immeasurable [Recovered/Resolved]

NARRATIVE: CASE EVENT DATE: 20200604
